FAERS Safety Report 10386579 (Version 1)
Quarter: 2014Q1

REPORT INFORMATION
  Report Type: Spontaneous
  Country: US (occurrence: None)
  Receive Date: 20140306
  Receipt Date: 20140306
  Transmission Date: 20141002
  Serious: Yes (Life-Threatening, Hospitalization, Other)
  Sender: FDA-Public Use
  Company Number: 163-21880-13121431

PATIENT
  Age: 57 Year
  Sex: Male

DRUGS (2)
  1. REVLIMID [Suspect]
     Indication: PLASMA CELL MYELOMA
     Dosage: 21 IN 21 D?TEMPORARILY INTERRUPTED
     Route: 048
     Dates: start: 20130206
  2. ASA (ACETYLSALICYLIC ACID) [Concomitant]

REACTIONS (3)
  - Embolic stroke [None]
  - Pulmonary thrombosis [None]
  - Cerebrovascular accident [None]
